FAERS Safety Report 8106662-X (Version None)
Quarter: 2011Q4

REPORT INFORMATION
  Report Type: 
  Country: None (occurrence: None)
  Receive Date: 20111222
  Receipt Date: 20111117
  Transmission Date: 20120403
  Serious: Yes (Death)
  Sender: FDA-Public Use
  Company Number: UTC-011653

PATIENT
  Age: 44 Year
  Sex: Female
  Weight: 79.09 kg

DRUGS (9)
  1. ADCIRCA [Concomitant]
  2. COUMADIN [Concomitant]
  3. TRACLEER [Concomitant]
  4. SUSTIVA [Concomitant]
  5. DIGOXIN [Concomitant]
  6. TYVASO [Suspect]
     Indication: PULMONARY HYPERTENSION
     Dosage: 18-54 MICROGRAMS (4 IN 1 D),INHALATION
     Route: 055
     Dates: start: 20110909
  7. DIURETICS (DIURETICS) [Concomitant]
  8. CARDIZEM [Concomitant]
  9. TRIZIVIR (TRIZIVIR /01505901/) [Concomitant]

REACTIONS (2)
  - PULMONARY ARTERIAL HYPERTENSION [None]
  - CONDITION AGGRAVATED [None]
